FAERS Safety Report 20797947 (Version 1)
Quarter: 2022Q2

REPORT INFORMATION
  Report Type: Spontaneous
  Country: US (occurrence: US)
  Receive Date: 20220506
  Receipt Date: 20220506
  Transmission Date: 20220721
  Serious: No
  Sender: FDA-Public Use
  Company Number: None

PATIENT
  Age: 57 Year
  Sex: Male

DRUGS (1)
  1. REVLIMID [Suspect]
     Active Substance: LENALIDOMIDE
     Indication: Plasma cell myeloma
     Dosage: FREQUENCY : TAKE 1 CAPSULE  BY MOUTH EVERYDAY FOR 21 DAYS THEN OFF FOR 7 DAYS DO NOT BREAK CHEW OR O
     Route: 048
     Dates: start: 20200228

REACTIONS (1)
  - Product dose omission issue [Unknown]
